FAERS Safety Report 8021440-8 (Version None)
Quarter: 2012Q1

REPORT INFORMATION
  Report Type: 
  Country: None (occurrence: None)
  Receive Date: 20120104
  Receipt Date: 20111226
  Transmission Date: 20120608
  Serious: Yes (Hospitalization)
  Sender: FDA-Public Use
  Company Number: JP-JNJFOC-20101000236

PATIENT
  Sex: Female
  Weight: 63 kg

DRUGS (30)
  1. PREDNISOLONE [Concomitant]
     Indication: PROPHYLAXIS
     Route: 042
     Dates: start: 20080828, end: 20100520
  2. LEVOFLOXACIN [Concomitant]
     Indication: UPPER RESPIRATORY TRACT INFLAMMATION
     Dates: start: 20090108, end: 20090114
  3. MYSER [Concomitant]
     Indication: BEHCET'S SYNDROME
     Route: 003
     Dates: start: 20090618
  4. RINDERON-VG [Concomitant]
     Indication: BEHCET'S SYNDROME
     Dates: start: 20090618
  5. LEVOFLOXACIN [Concomitant]
     Indication: INGROWING NAIL
     Dates: start: 20090108, end: 20090114
  6. LEVOFLOXACIN [Concomitant]
     Dates: start: 20090924, end: 20091103
  7. ATARAX [Concomitant]
     Indication: SINUSITIS
     Route: 048
     Dates: start: 20081127
  8. CLONAZEPAM [Concomitant]
     Indication: KERATITIS
     Route: 048
  9. NEORAL [Concomitant]
     Route: 048
     Dates: start: 20071122, end: 20080207
  10. BETAMETHASONE [Concomitant]
     Indication: BEHCET'S SYNDROME
     Dosage: VARIOUS DROPS TO EACH EYE
     Route: 031
     Dates: start: 20071122, end: 20090507
  11. PYDOXAL [Concomitant]
     Indication: BEHCET'S SYNDROME
     Route: 048
     Dates: start: 20081127
  12. COLCHICINE [Concomitant]
     Route: 048
     Dates: start: 20100416
  13. DASEN [Concomitant]
     Indication: SINUSITIS
     Route: 048
  14. METHYCOBAL [Concomitant]
     Indication: KERATITIS
     Route: 048
  15. TIMOPTOL [Concomitant]
     Indication: GLAUCOMA
     Route: 031
     Dates: start: 20080101
  16. ZYRTEC [Concomitant]
     Indication: SINUSITIS
     Route: 048
     Dates: start: 20081127
  17. COLCHICINE [Concomitant]
     Indication: BEHCET'S SYNDROME
     Route: 048
     Dates: start: 20090227, end: 20100415
  18. HYALEIN [Concomitant]
     Indication: KERATITIS
     Route: 031
  19. HIRUDOID CREAM [Concomitant]
     Indication: BEHCET'S SYNDROME
     Route: 003
     Dates: start: 20090507
  20. NEORAL [Concomitant]
     Indication: BEHCET'S SYNDROME
     Route: 048
     Dates: start: 20080208, end: 20080521
  21. ETODOLAC [Concomitant]
     Indication: BEHCET'S SYNDROME
     Route: 048
     Dates: start: 20080522
  22. AZUNOL [Concomitant]
     Indication: BEHCET'S SYNDROME
     Route: 048
     Dates: start: 20080523, end: 20090930
  23. KENALOG [Concomitant]
     Indication: BEHCET'S SYNDROME
     Route: 003
     Dates: start: 20081119
  24. RIBOFLAVIN TAB [Concomitant]
     Indication: BEHCET'S SYNDROME
     Route: 048
     Dates: start: 20081127
  25. XALATAN [Concomitant]
     Indication: GLAUCOMA
     Route: 031
  26. LEVOFLOXACIN [Concomitant]
     Dates: start: 20090924, end: 20091103
  27. REMICADE [Suspect]
     Indication: BEHCET'S SYNDROME
     Dosage: TOTAL OF 18 INFUSIONS
     Route: 042
     Dates: start: 20080522, end: 20100520
  28. DEXCHLORPHENIRAMINE MALEATE [Concomitant]
     Indication: PROPHYLAXIS
     Dates: start: 20081127, end: 20100520
  29. COLCHICINE [Concomitant]
     Route: 048
     Dates: start: 20090205, end: 20090226
  30. SELBEX [Concomitant]
     Indication: GASTRITIS
     Route: 048

REACTIONS (5)
  - UPPER RESPIRATORY TRACT INFLAMMATION [None]
  - ANGIOPATHY [None]
  - CONVULSION [None]
  - GASTROENTERITIS [None]
  - INFUSION RELATED REACTION [None]
